FAERS Safety Report 18528961 (Version 2)
Quarter: 2020Q4

REPORT INFORMATION
  Report Type: Spontaneous
  Country: US (occurrence: US)
  Receive Date: 20201120
  Receipt Date: 20201126
  Transmission Date: 20210114
  Serious: Yes (Other)
  Sender: FDA-Public Use
  Company Number: US-PFIZER INC-2019145848

PATIENT
  Age: 1 Year
  Sex: Male

DRUGS (2)
  1. RAPAMUNE [Suspect]
     Active Substance: SIROLIMUS
     Indication: CONGENITAL EYE DISORDER
     Dosage: 0.5 ML, TWICE DAILY
     Route: 048
  2. RAPAMUNE [Suspect]
     Active Substance: SIROLIMUS
     Dosage: 0.8 ML, TWICE DAILY
     Route: 048

REACTIONS (4)
  - Product use in unapproved indication [Unknown]
  - Epiphyseal fracture [Unknown]
  - Off label use [Unknown]
  - Product use issue [Unknown]
